FAERS Safety Report 14585515 (Version 3)
Quarter: 2018Q2

REPORT INFORMATION
  Report Type: Spontaneous
  Country: US (occurrence: US)
  Receive Date: 20180301
  Receipt Date: 20180411
  Transmission Date: 20180711
  Serious: Yes (Death, Other)
  Sender: FDA-Public Use
  Company Number: US-PFIZER INC-2018083122

PATIENT
  Age: 64 Year
  Sex: Female
  Weight: 66.67 kg

DRUGS (1)
  1. INLYTA [Suspect]
     Active Substance: AXITINIB
     Indication: RENAL CANCER METASTATIC
     Dosage: 5 MG, TWICE DAILY
     Route: 048
     Dates: start: 20180216, end: 201804

REACTIONS (10)
  - Decreased appetite [Unknown]
  - Skin haemorrhage [Unknown]
  - Loss of consciousness [Unknown]
  - Fall [Unknown]
  - Nervousness [Unknown]
  - Nausea [Unknown]
  - Blister [Unknown]
  - Dizziness [Unknown]
  - Death [Fatal]
  - Weight decreased [Unknown]

NARRATIVE: CASE EVENT DATE: 201802
